FAERS Safety Report 20867852 (Version 4)
Quarter: 2023Q1

REPORT INFORMATION
  Report Type: Other
  Country: CN (occurrence: None)
  Receive Date: 20220524
  Receipt Date: 20230120
  Transmission Date: 20230418
  Serious: Yes (Hospitalization, Other)
  Sender: FDA-Public Use
  Company Number: CN-ROCHE-1924965

PATIENT
  Age: 53 Year
  Sex: Female
  Weight: 58 kg

DRUGS (3)
  1. AVASTIN [Suspect]
     Active Substance: BEVACIZUMAB
     Indication: Lung adenocarcinoma
     Dosage: FORM OF ADMIN: 100 MG, INJECTION
     Route: 041
     Dates: start: 20161102, end: 20191203
  2. AVASTIN [Suspect]
     Active Substance: BEVACIZUMAB
     Dosage: FORM OF ADMIN: 100 MG, INJECTION
     Route: 041
     Dates: start: 20200617, end: 20220426
  3. AVASTIN [Suspect]
     Active Substance: BEVACIZUMAB
     Dosage: FORM OF ADMIN: 100 MG
     Route: 041

REACTIONS (20)
  - Anal haemorrhage [Unknown]
  - Blood uric acid increased [Unknown]
  - Gout [Unknown]
  - Blood glucose increased [Unknown]
  - Diabetes mellitus [Recovered/Resolved]
  - Speech disorder [Unknown]
  - Nasopharyngitis [Unknown]
  - Hypertension [Unknown]
  - Diarrhoea [Recovered/Resolved]
  - Movement disorder [Unknown]
  - Dizziness [Unknown]
  - Vomiting [Unknown]
  - Colitis [Recovered/Resolved]
  - SARS-CoV-2 test positive [Unknown]
  - Pyrexia [Unknown]
  - Cough [Unknown]
  - Asthenia [Unknown]
  - Protein urine present [Recovered/Resolved]
  - Female reproductive tract disorder [Recovered/Resolved]
  - Heart rate increased [Unknown]

NARRATIVE: CASE EVENT DATE: 20191210
